FAERS Safety Report 17824502 (Version 1)
Quarter: 2020Q2

REPORT INFORMATION
  Report Type: Spontaneous
  Country: US (occurrence: US)
  Receive Date: 20200523
  Receipt Date: 20200523
  Transmission Date: 20200714
  Serious: Yes (Hospitalization)
  Sender: FDA-Public Use
  Company Number: None

PATIENT
  Sex: Female
  Weight: 104.1 kg

DRUGS (1)
  1. ASPIRIN. [Suspect]
     Active Substance: ASPIRIN
     Indication: DRUG THERAPY
     Dates: end: 20200216

REACTIONS (2)
  - Colitis [None]
  - Haematochezia [None]

NARRATIVE: CASE EVENT DATE: 20200217
